FAERS Safety Report 9139900 (Version 1)
Quarter: 2013Q1

REPORT INFORMATION
  Report Type: Spontaneous
  Country: US (occurrence: US)
  Receive Date: 20130305
  Receipt Date: 20130305
  Transmission Date: 20140127
  Serious: No
  Sender: FDA-Public Use
  Company Number: US-BAYER-2013-027619

PATIENT
  Age: 62 Year
  Sex: Male
  Weight: 111 kg

DRUGS (5)
  1. ALEVE CAPLET/TABLET,MIDOL EXTENDED RELIEF CAPLET [Suspect]
     Indication: HEADACHE
     Dosage: 2 DF, PRN
     Route: 048
     Dates: end: 20130225
  2. EFFEXOR [Concomitant]
  3. TOPAMAX [Concomitant]
  4. OMEPRAZOL [Concomitant]
  5. FENTANYL [Concomitant]

REACTIONS (1)
  - Insomnia [Recovered/Resolved]
